FAERS Safety Report 8975462 (Version 1)
Quarter: 2012Q4

REPORT INFORMATION
  Report Type: 
  Country: US (occurrence: US)
  Receive Date: 20121219
  Receipt Date: 20121219
  Transmission Date: 20130627
  Serious: No
  Sender: FDA-Public Use
  Company Number: US-AMGEN-USASP2012074626

PATIENT
  Age: 87 Year
  Sex: Female

DRUGS (8)
  1. PROLIA [Suspect]
     Indication: OSTEOPOROSIS POSTMENOPAUSAL
     Dosage: 60 mg, q6mo
  2. MULTAQ [Concomitant]
  3. ASPIRIN [Concomitant]
  4. PLAVIX [Concomitant]
  5. CENTRUM SILVER                     /02363801/ [Concomitant]
  6. CALCIUM [Concomitant]
  7. PROTONIX [Concomitant]
  8. VITAMIN D /00107901/ [Concomitant]

REACTIONS (6)
  - Feeling hot [Recovering/Resolving]
  - Dry skin [Recovered/Resolved]
  - Pain [Unknown]
  - Erythema [Recovering/Resolving]
  - Swelling face [Recovering/Resolving]
  - Pruritus [Recovering/Resolving]
